FAERS Safety Report 8804660 (Version 1)
Quarter: 2012Q4

REPORT INFORMATION
  Report Type: Spontaneous
  Country: DE (occurrence: None)
  Receive Date: 20120917
  Receipt Date: 20120917
  Transmission Date: 20130627
  Serious: Yes (Congenital Anomaly, Other)
  Sender: FDA-Public Use
  Company Number: AUR-APL-2012-03958

PATIENT
  Sex: Female
  Weight: 2.95 kg

DRUGS (4)
  1. LAMOTRIGINE (LAMOTRIGINE) [Suspect]
     Dosage: 10-11gw: 225 mg/day, 10-12gw: 250 mg/day, 12-13gw: 275 mg/day, 13-15: 300 mg/day (1 d), transplacental
     Route: 064
     Dates: start: 20110218, end: 20121202
  2. VIMPAT [Suspect]
     Dosage: 10-11gw, 250 mg/day, 11-12gw: 200 mg/day, 12-13gw: 150 mg/day, 13-14gw; 100 mg/day and 14-15: 50m (1 d), transplacental
     Dates: start: 10110218, end: 20111202
  3. ZEBINIX (ESLICARBAZEPINE ACETATE) [Concomitant]
  4. FOLIO FORTE (FOLIC ACID) [Concomitant]

REACTIONS (3)
  - Atrial septal defect [None]
  - Atrial septal defect [None]
  - Maternal drugs affecting foetus [None]
